FAERS Safety Report 5320089-5 (Version None)
Quarter: 2007Q1

REPORT INFORMATION
  Report Type: 
  Country: None (occurrence: None)
  Receive Date: 20070215
  Receipt Date: 20060110
  Transmission Date: 20070707
  Serious: Yes (Other)
  Sender: FDA-Public Use
  Company Number: MC200600027

PATIENT
  Sex: Female

DRUGS (3)
  1. ANGIOMAX [Suspect]
     Dosage: SEE IMAGE
     Route: 040
  2. PLAVIX [Concomitant]
  3. ASPIRIN [Concomitant]

REACTIONS (1)
  - PULMONARY HAEMORRHAGE [None]
